FAERS Safety Report 7679850-4 (Version None)
Quarter: 2011Q3

REPORT INFORMATION
  Report Type: 
  Country: None (occurrence: None)
  Receive Date: 20110812
  Receipt Date: 20110811
  Transmission Date: 20111222
  Serious: Yes (Death)
  Sender: FDA-Public Use
  Company Number: JP-PFIZER INC-2011185077

PATIENT
  Age: 58 Year
  Sex: Male

DRUGS (1)
  1. CEFOPERAZONE SODIUM [Suspect]
     Indication: CHOLANGITIS
     Dosage: 1 G/DAY
     Route: 041
     Dates: start: 20110810

REACTIONS (1)
  - ANAPHYLACTIC SHOCK [None]
